FAERS Safety Report 13210084 (Version 1)
Quarter: 2017Q1

REPORT INFORMATION
  Report Type: Spontaneous
  Country: NZ (occurrence: NZ)
  Receive Date: 20170209
  Receipt Date: 20170209
  Transmission Date: 20170428
  Serious: Yes (Other)
  Sender: FDA-Public Use
  Company Number: NZ-MYLANLABS-2017M1006926

PATIENT

DRUGS (1)
  1. LETROZOLE. [Suspect]
     Active Substance: LETROZOLE
     Indication: PRODUCT USED FOR UNKNOWN INDICATION
     Dosage: UNK

REACTIONS (7)
  - Arthralgia [Recovering/Resolving]
  - Acalculia [Recovering/Resolving]
  - Sedation [Recovered/Resolved]
  - Amnesia [Recovering/Resolving]
  - Nausea [Recovered/Resolved]
  - Aphasia [Recovering/Resolving]
  - Arthritis [Unknown]
